FAERS Safety Report 24466957 (Version 1)
Quarter: 2024Q4

REPORT INFORMATION
  Report Type: Report from Study
  Country: US (occurrence: US)
  Receive Date: 20241018
  Receipt Date: 20241018
  Transmission Date: 20250115
  Serious: No
  Sender: ROCHE
  Company Number: US-ROCHE-3554143

PATIENT
  Age: 68 Year
  Sex: Female
  Weight: 58.01 kg

DRUGS (9)
  1. XOLAIR [Suspect]
     Active Substance: OMALIZUMAB
     Indication: Idiopathic urticaria
     Route: 058
  2. PROZAC [Concomitant]
     Active Substance: FLUOXETINE HYDROCHLORIDE
  3. AMITRIPTYLINE [Concomitant]
     Active Substance: AMITRIPTYLINE
  4. VANICREAM [Concomitant]
     Active Substance: TITANIUM DIOXIDE\ZINC OXIDE
  5. TRILEPTAL [Concomitant]
     Active Substance: OXCARBAZEPINE
  6. OLOPATADINE [Concomitant]
     Active Substance: OLOPATADINE
  7. LYSINE [Concomitant]
     Active Substance: LYSINE
  8. VALTREX [Concomitant]
     Active Substance: VALACYCLOVIR HYDROCHLORIDE
  9. ZANAFLEX [Concomitant]
     Active Substance: TIZANIDINE HYDROCHLORIDE

REACTIONS (8)
  - Rhinitis [Unknown]
  - Lacrimation increased [Unknown]
  - Nasal congestion [Unknown]
  - Drug ineffective [Unknown]
  - Pruritus [Unknown]
  - Rhinorrhoea [Unknown]
  - Eye pruritus [Unknown]
  - Conjunctivitis allergic [Unknown]
